FAERS Safety Report 7782855-6 (Version None)
Quarter: 2011Q3

REPORT INFORMATION
  Report Type: 
  Country: None (occurrence: None)
  Receive Date: 20110928
  Receipt Date: 20110915
  Transmission Date: 20111222
  Serious: Yes (Other)
  Sender: FDA-Public Use
  Company Number: CA-MYLANLABS-2011S1019291

PATIENT
  Age: 61 Year
  Sex: Female

DRUGS (1)
  1. VERAPAMIL [Suspect]
     Route: 048
     Dates: start: 20091027

REACTIONS (1)
  - ANAPHYLACTIC REACTION [None]
